FAERS Safety Report 19961261 (Version 1)
Quarter: 2021Q4

REPORT INFORMATION
  Report Type: Spontaneous
  Country: GB (occurrence: GB)
  Receive Date: 20211017
  Receipt Date: 20211017
  Transmission Date: 20220303
  Serious: Yes (Other)
  Sender: FDA-Public Use
  Company Number: GB-ASCEND THERAPEUTICS US, LLC-2120639

PATIENT
  Age: 54 Year
  Sex: Female
  Weight: 63.5 kg

DRUGS (5)
  1. ESTROGEL [Suspect]
     Active Substance: ESTRADIOL
     Indication: Hormone replacement therapy
     Route: 065
  2. ESTROGEL [Suspect]
     Active Substance: ESTRADIOL
  3. ESTRADIOL [Suspect]
     Active Substance: ESTRADIOL
     Route: 065
  4. CO-AMOXICLAV(AMOXICILLIN, CLAVULANATE POTASSIUM) [Concomitant]
     Route: 065
  5. CEPHALEXIN(CEFALEXIN) [Concomitant]
     Route: 065

REACTIONS (4)
  - Abdominal pain upper [Unknown]
  - Postmenopausal haemorrhage [Unknown]
  - Back pain [Unknown]
  - Headache [Unknown]
